FAERS Safety Report 7028866-X (Version None)
Quarter: 2010Q4

REPORT INFORMATION
  Report Type: 
  Country: None (occurrence: None)
  Receive Date: 20101005
  Receipt Date: 20100927
  Transmission Date: 20110411
  Serious: Yes (Life-Threatening, Hospitalization)
  Sender: FDA-Public Use
  Company Number: US-PURDUE-USA-2010-0048150

PATIENT
  Sex: Female

DRUGS (6)
  1. OXYCONTIN [Suspect]
     Indication: PAIN
     Dosage: 80 MG, BID
     Dates: start: 20100801
  2. BENDAMUSTINE [Interacting]
     Indication: LYMPHOMA
  3. DEMEROL [Concomitant]
     Indication: PAIN
  4. ACTOS [Concomitant]
     Indication: DIABETES MELLITUS
  5. LANTUS                             /01483501/ [Concomitant]
     Indication: DIABETES MELLITUS
  6. NOVOLOG [Concomitant]
     Indication: DIABETES MELLITUS

REACTIONS (4)
  - BLOOD GLUCOSE ABNORMAL [None]
  - BLOOD PRESSURE ABNORMAL [None]
  - DRUG INTERACTION [None]
  - DRUG WITHDRAWAL SYNDROME [None]
